FAERS Safety Report 9345031 (Version 1)
Quarter: 2013Q2

REPORT INFORMATION
  Report Type: Spontaneous
  Country: CN (occurrence: CN)
  Receive Date: 20130612
  Receipt Date: 20130612
  Transmission Date: 20140414
  Serious: Yes (Other)
  Sender: FDA-Public Use
  Company Number: CN-JNJFOC-20130605512

PATIENT
  Age: 24 Year
  Sex: Female

DRUGS (2)
  1. MOTRIN SUSPENSION [Suspect]
     Route: 048
  2. MOTRIN SUSPENSION [Suspect]
     Indication: PYREXIA
     Route: 048
     Dates: start: 20120618, end: 20120618

REACTIONS (1)
  - Angioedema [Recovered/Resolved]
